FAERS Safety Report 7155200-7 (Version None)
Quarter: 2010Q4

REPORT INFORMATION
  Report Type: 
  Country: None (occurrence: None)
  Receive Date: 20101214
  Receipt Date: 20091203
  Transmission Date: 20110411
  Serious: No
  Sender: FDA-Public Use
  Company Number: US-AMGEN-KDL372853

PATIENT

DRUGS (12)
  1. ENBREL [Suspect]
     Indication: RHEUMATOID ARTHRITIS
     Dosage: 50 MG, QWK
     Route: 058
     Dates: start: 20091026
  2. METHOTREXATE [Concomitant]
     Dosage: 10 MG, QWK
     Route: 048
     Dates: start: 20080403
  3. PREGABALIN [Concomitant]
     Dosage: UNK UNK, UNK
     Dates: start: 20081121
  4. ESCITALOPRAM [Concomitant]
  5. MONTELUKAST [Concomitant]
  6. PANTOPRAZOLE SODIUM [Concomitant]
  7. INDOMETHACIN [Concomitant]
  8. CYCLOBENZAPRINE HCL [Concomitant]
  9. FOLIC ACID [Concomitant]
  10. MAGNESIUM [Concomitant]
  11. CALCIUM [Concomitant]
  12. ERGOCALCIFEROL [Concomitant]

REACTIONS (1)
  - PAIN IN EXTREMITY [None]
